FAERS Safety Report 24011349 (Version 1)
Quarter: 2024Q2

REPORT INFORMATION
  Report Type: Report from Study
  Country: FR (occurrence: FR)
  Receive Date: 20240625
  Receipt Date: 20240625
  Transmission Date: 20240716
  Serious: Yes (Other)
  Sender: FDA-Public Use
  Company Number: FR-JNJFOC-20230421507

PATIENT
  Age: 15 Year
  Sex: Female

DRUGS (2)
  1. REMICADE [Suspect]
     Active Substance: INFLIXIMAB
     Indication: Crohn^s disease
     Route: 041
     Dates: start: 20101110, end: 20110224
  2. REMICADE [Suspect]
     Active Substance: INFLIXIMAB
     Route: 041
     Dates: start: 20110323, end: 20111118

REACTIONS (9)
  - Syncope [Recovered/Resolved]
  - Haematemesis [Unknown]
  - Aphthous ulcer [Unknown]
  - Bronchitis [Unknown]
  - Depression [Unknown]
  - Menstruation irregular [Unknown]
  - Dizziness [Unknown]
  - Ear infection [Unknown]
  - Haemoptysis [Unknown]

NARRATIVE: CASE EVENT DATE: 20111018
